FAERS Safety Report 8094289-8 (Version None)
Quarter: 2012Q1

REPORT INFORMATION
  Report Type: 
  Country: None (occurrence: None)
  Receive Date: 20120130
  Receipt Date: 20120124
  Transmission Date: 20120608
  Serious: No
  Sender: FDA-Public Use
  Company Number: US-PFIZER INC-2012020242

PATIENT
  Sex: Female
  Weight: 90.703 kg

DRUGS (10)
  1. ESTROGENS ESTERIFIED [Concomitant]
     Dosage: 0.625 MG, DAILY
  2. LISDEXAMFETAMINE DIMESYLATE [Concomitant]
     Indication: BRAIN INJURY
     Dosage: 70 MG, DAILY
  3. CYMBALTA [Concomitant]
     Indication: BRAIN INJURY
     Dosage: 90 MG, DAILY
  4. SUCRALFATE [Concomitant]
     Dosage: 1 G, DAILY
  5. MECLIZINE [Concomitant]
     Indication: BRAIN INJURY
     Dosage: 25 MG, DAILY
  6. SINEMET CR [Concomitant]
     Indication: BRAIN INJURY
     Dosage: 55/220 MG, DAILY
  7. GENOTROPIN [Suspect]
     Indication: GROWTH HORMONE DEFICIENCY
     Dosage: 0.3, 1X/DAY
     Dates: start: 20090101
  8. NEXIUM [Concomitant]
     Dosage: 40 MG, DAILY
  9. PROVIGIL [Concomitant]
     Indication: BRAIN INJURY
     Dosage: 600 MG, DAILY
  10. NABUMETONE [Concomitant]
     Indication: BRAIN INJURY
     Dosage: 1 G, 2X/DAY

REACTIONS (2)
  - INCORRECT DOSE ADMINISTERED [None]
  - SWELLING [None]
